FAERS Safety Report 16777699 (Version 1)
Quarter: 2019Q3

REPORT INFORMATION
  Report Type: Report from Study
  Country: US (occurrence: US)
  Receive Date: 20190905
  Receipt Date: 20190905
  Transmission Date: 20191005
  Serious: No
  Sender: FDA-Public Use
  Company Number: US-SAGE-2019SAGE000027

PATIENT

DRUGS (1)
  1. BREXANOLONE. [Suspect]
     Active Substance: BREXANOLONE
     Indication: PERINATAL DEPRESSION
     Dosage: UNK
     Route: 042
     Dates: start: 20190801, end: 20190804

REACTIONS (2)
  - Menstruation irregular [Unknown]
  - Product use complaint [Unknown]

NARRATIVE: CASE EVENT DATE: 201908
